FAERS Safety Report 7258745-4 (Version None)
Quarter: 2011Q1

REPORT INFORMATION
  Report Type: 
  Country: None (occurrence: None)
  Receive Date: 20110129
  Receipt Date: 20100601
  Transmission Date: 20110831
  Serious: No
  Sender: FDA-Public Use
  Company Number: US-ABBOTT-10P-163-0648283-00

PATIENT
  Age: 66 Year
  Sex: Female

DRUGS (8)
  1. METOPROLOL SUCCINATE EXTENDED RELEASE [Concomitant]
     Indication: HYPERTENSION
  2. ACTONEL [Concomitant]
     Indication: MINERAL SUPPLEMENTATION
  3. PREDNISONE [Concomitant]
     Indication: BACK PAIN
  4. CALCIUM W/VITAMIN D [Concomitant]
     Indication: PRODUCT USED FOR UNKNOWN INDICATION
  5. LOVAZA [Concomitant]
     Indication: VITAMIN SUPPLEMENTATION
  6. HYDROCODONE BITARTRATE + ACETAMINOPHEN [Concomitant]
     Indication: BACK PAIN
     Dosage: 3/325
  7. BENICAR [Concomitant]
     Indication: HYPERTENSION
  8. HUMIRA [Suspect]
     Indication: ANKYLOSING SPONDYLITIS
     Dates: start: 20100528

REACTIONS (2)
  - URTICARIA [None]
  - PRURITUS [None]
